FAERS Safety Report 6992632-1 (Version None)
Quarter: 2010Q3

REPORT INFORMATION
  Report Type: 
  Country: None (occurrence: None)
  Receive Date: 20100917
  Receipt Date: 20100913
  Transmission Date: 20110219
  Serious: Yes (Life-Threatening, Hospitalization, Other)
  Sender: FDA-Public Use
  Company Number: NO-ROCHE-727049

PATIENT
  Sex: Female

DRUGS (5)
  1. AVASTIN [Suspect]
     Dosage: DOSE REPORTED: 375 MG (5 MG/KG). FREQ: IN ADDITION TO FLOX, DOSE NR 6 21 JAN 2010, NR 7 22 FEB 2010.
     Route: 051
     Dates: start: 20091019, end: 20100222
  2. ELOXATIN [Suspect]
     Dosage: DOSE: 155 MG (85 MG/M^2).  FREQUENCY: FLOX SERIES NO 3, 7 DOSES IN TOTAL.
     Route: 051
     Dates: start: 20091019, end: 20100222
  3. ELOXATIN [Suspect]
     Dosage: DOSE: 155 MG (85 MG/M^2).  FREQUENCY: FLOX SERIES NO 4, ONE DOSE ONLY.
     Route: 051
     Dates: start: 20100626, end: 20100626
  4. FLUOROURACIL [Concomitant]
     Dosage: FREQUENCY: PART OF FLOX SERIES 3.
     Route: 051
     Dates: start: 20091019, end: 20100222
  5. FLUOROURACIL [Concomitant]
     Dosage: FREQUENCY: PART OF FLOX SERIES 4.
     Route: 051
     Dates: start: 20100626, end: 20100627

REACTIONS (4)
  - CONTUSION [None]
  - EPISTAXIS [None]
  - HAEMATURIA [None]
  - RENAL FAILURE ACUTE [None]
